FAERS Safety Report 13347377 (Version 3)
Quarter: 2017Q2

REPORT INFORMATION
  Report Type: Report from Study
  Country: FR (occurrence: FR)
  Receive Date: 20170317
  Receipt Date: 20170505
  Transmission Date: 20170830
  Serious: Yes (Other)
  Sender: FDA-Public Use
  Company Number: FR-ROCHE-1903681

PATIENT
  Age: 51 Year
  Sex: Male
  Weight: 62 kg

DRUGS (2)
  1. COBIMETINIB [Suspect]
     Active Substance: COBIMETINIB
     Indication: METASTASES TO CENTRAL NERVOUS SYSTEM
     Dosage: CYCLE 5?DATE OF LAST DOSE 60 MG PRIOR TO SAE: 07/MAR/2017
     Route: 048
     Dates: start: 20161018
  2. VEMURAFENIB [Suspect]
     Active Substance: VEMURAFENIB
     Indication: METASTASES TO CENTRAL NERVOUS SYSTEM
     Dosage: CYCLE 5?DATE OF LAST DOSE 980 MG PRIOR TO SAE: 07/MAR/2017
     Route: 048
     Dates: start: 20161018

REACTIONS (1)
  - Macular dystrophy congenital [Recovered/Resolved with Sequelae]

NARRATIVE: CASE EVENT DATE: 20170307
